FAERS Safety Report 4631616-5 (Version None)
Quarter: 2005Q2

REPORT INFORMATION
  Report Type: 
  Country: None (occurrence: None)
  Receive Date: 20050407
  Receipt Date: 20050401
  Transmission Date: 20051028
  Serious: Yes (Death)
  Sender: FDA-Public Use
  Company Number: 2005SE01927

PATIENT
  Age: 26 Year
  Sex: Male
  Weight: 68 kg

DRUGS (4)
  1. SEROQUEL [Suspect]
     Indication: SCHIZOPHRENIA
     Dosage: 300 MG BID PO
     Route: 048
     Dates: start: 20031001, end: 20050305
  2. CLOZAPINE [Suspect]
     Indication: SCHIZOPHRENIA
     Dosage: 100 MG QID PO
     Route: 048
     Dates: start: 20020719, end: 20050305
  3. VALPROIC ACID [Concomitant]
  4. FLUPHENAZINE [Concomitant]

REACTIONS (5)
  - ACUTE ABDOMEN [None]
  - CARDIO-RESPIRATORY ARREST [None]
  - EPISTAXIS [None]
  - HYPOTENSION [None]
  - THROMBOCYTOPENIA [None]
